FAERS Safety Report 16157458 (Version 1)
Quarter: 2019Q2

REPORT INFORMATION
  Report Type: Spontaneous
  Country: US (occurrence: US)
  Receive Date: 20190404
  Receipt Date: 20190404
  Transmission Date: 20190711
  Serious: No
  Sender: FDA-Public Use
  Company Number: US-PFIZER INC-2019133633

PATIENT
  Sex: Female
  Weight: 136.5 kg

DRUGS (1)
  1. ADVIL LIQUI-GELS [Suspect]
     Active Substance: IBUPROFEN
     Indication: MYALGIA
     Dosage: 2 DF, UNK

REACTIONS (1)
  - Drug ineffective [Unknown]
